FAERS Safety Report 4540949-2 (Version None)
Quarter: 2004Q4

REPORT INFORMATION
  Report Type: 
  Country: None (occurrence: None)
  Receive Date: 20041229
  Receipt Date: 20041223
  Transmission Date: 20050328
  Serious: Yes (Other)
  Sender: FDA-Public Use
  Company Number: GB-GLAXOSMITHKLINE-B0362836A

PATIENT
  Sex: Female

DRUGS (12)
  1. ALKERAN [Suspect]
     Indication: MULTIPLE MYELOMA
  2. PREDNISOLONE [Suspect]
     Indication: MULTIPLE MYELOMA
  3. OLANZAPINE [Concomitant]
  4. ALLOPURINOL [Concomitant]
  5. CYCLIZINE [Concomitant]
  6. AMPHOTERICIN B [Concomitant]
  7. LANSOPRAZOLE [Concomitant]
  8. SUCRALFATE [Concomitant]
  9. CARBAMAZEPINE [Concomitant]
  10. THIAMINE [Concomitant]
  11. FERROUS SULFATE TAB [Concomitant]
  12. LORAZEPAM [Concomitant]

REACTIONS (2)
  - PSYCHOTIC DISORDER [None]
  - SCHIZOPHRENIA [None]
